FAERS Safety Report 6707425-X (Version None)
Quarter: 2010Q2

REPORT INFORMATION
  Report Type: 
  Country: None (occurrence: None)
  Receive Date: 20100503
  Receipt Date: 20090526
  Transmission Date: 20101027
  Serious: No
  Sender: FDA-Public Use
  Company Number: US-ASTRAZENECA-2003UW12565

PATIENT
  Age: 921 Month
  Sex: Female
  Weight: 90.7 kg

DRUGS (7)
  1. NEXIUM [Suspect]
     Indication: REGURGITATION
     Route: 048
     Dates: start: 20030601
  2. NEXIUM [Suspect]
     Indication: HIATUS HERNIA
     Route: 048
     Dates: start: 20030601
  3. NEXIUM [Suspect]
     Indication: GASTROOESOPHAGEAL REFLUX DISEASE
     Route: 048
     Dates: start: 20030601
  4. DIOVAN [Concomitant]
  5. ATIVAN [Concomitant]
  6. FOSAMAX [Concomitant]
  7. VICODIN [Concomitant]

REACTIONS (5)
  - ANORECTAL DISORDER [None]
  - DIARRHOEA [None]
  - HEADACHE [None]
  - INCREASED UPPER AIRWAY SECRETION [None]
  - NAUSEA [None]
